FAERS Safety Report 7822031-1 (Version None)
Quarter: 2011Q4

REPORT INFORMATION
  Report Type: 
  Country: None (occurrence: None)
  Receive Date: 20111018
  Receipt Date: 20111011
  Transmission Date: 20120403
  Serious: Yes (Hospitalization)
  Sender: FDA-Public Use
  Company Number: PHEH2011US06527

PATIENT
  Sex: Female

DRUGS (7)
  1. AMOXICILLIN [Concomitant]
  2. MV [Concomitant]
  3. SODIUM PHOSPHATES [Concomitant]
  4. EXJADE [Suspect]
     Indication: SICKLE CELL ANAEMIA
  5. FOLIC ACID [Concomitant]
  6. EXJADE [Suspect]
     Indication: IRON OVERLOAD
     Dosage: 250 MG, DAILY
     Route: 048
     Dates: start: 20110501
  7. LACTULOSE [Concomitant]

REACTIONS (1)
  - FULL BLOOD COUNT DECREASED [None]
